FAERS Safety Report 4871680-1 (Version None)
Quarter: 2005Q4

REPORT INFORMATION
  Report Type: 
  Country: None (occurrence: None)
  Receive Date: 20051230
  Receipt Date: 20051222
  Transmission Date: 20060501
  Serious: Yes (Hospitalization)
  Sender: FDA-Public Use
  Company Number: USA-2005-0021909

PATIENT
  Age: 1 Year
  Sex: Male

DRUGS (9)
  1. CEFDITOREN PIVOXIL (SIMILAR TO NDA 21-222)(CEFDITOREN PIVOXIL) OTHER [Suspect]
     Indication: BRONCHITIS
     Dosage: 80 MG, DAILY, ORAL
     Route: 048
     Dates: start: 20051029, end: 20051031
  2. AMOXICILLIN [Suspect]
     Indication: BRONCHITIS
     Dosage: 250 MG, UNK, ORAL
     Route: 048
     Dates: start: 20051021, end: 20011024
  3. ERYTHROCIN [Suspect]
     Indication: BRONCHITIS
     Dosage: 250 MG, DAILY, ORAL
     Route: 048
     Dates: start: 20051025, end: 20051028
  4. ASVERIN(TIPEPIDINE HIBENZATE) [Concomitant]
  5. METHY F(METHYLEPHEDRINE HYDROCHLORIDE-DL) [Concomitant]
  6. PERIACTIN [Concomitant]
  7. ANHIBA [Concomitant]
  8. NEUZYM (LYSOZYME HYDROCHLORIDE) [Concomitant]
  9. BIOFERMIN R (STREPTOCOCCUS FAECALIS) [Concomitant]

REACTIONS (2)
  - NEUTROPENIA [None]
  - PYREXIA [None]
